FAERS Safety Report 13951453 (Version 1)
Quarter: 2017Q3

REPORT INFORMATION
  Report Type: Spontaneous
  Country: US (occurrence: US)
  Receive Date: 20170908
  Receipt Date: 20170908
  Transmission Date: 20171128
  Serious: No
  Sender: FDA-Public Use
  Company Number: US-JAZZ-2017-US-009629

PATIENT
  Sex: Female

DRUGS (18)
  1. ADVIL (MEFENAMIC ACID) [Concomitant]
     Active Substance: MEFENAMIC ACID
  2. TRAMADOL HCL [Concomitant]
     Active Substance: TRAMADOL HYDROCHLORIDE
  3. ZOLOFT [Concomitant]
     Active Substance: SERTRALINE HYDROCHLORIDE
  4. XYREM [Suspect]
     Active Substance: SODIUM OXYBATE
     Indication: NARCOLEPSY
     Dosage: 2.25G, BID
     Route: 048
     Dates: start: 201604, end: 201605
  5. ADDERALL [Concomitant]
     Active Substance: AMPHETAMINE ASPARTATE\AMPHETAMINE SULFATE\DEXTROAMPHETAMINE SACCHARATE\DEXTROAMPHETAMINE SULFATE
  6. GLUCOSAMINE [Concomitant]
     Active Substance: GLUCOSAMINE
  7. RESTASIS [Concomitant]
     Active Substance: CYCLOSPORINE
  8. FISH OIL OMEGA 3 [Concomitant]
     Active Substance: FISH OIL
  9. XYREM [Suspect]
     Active Substance: SODIUM OXYBATE
     Indication: CATAPLEXY
     Dosage: 1.5G, BID
     Route: 048
     Dates: start: 201605, end: 2016
  10. ALLEGRA-D                          /01367401/ [Concomitant]
  11. BIOTIN [Concomitant]
     Active Substance: BIOTIN
  12. GABAPENTIN. [Concomitant]
     Active Substance: GABAPENTIN
  13. CLINDAMYCIN/BENZOYL PEROXIDE [Concomitant]
  14. PROGESTERONE. [Concomitant]
     Active Substance: PROGESTERONE
  15. TYLENOL EXTRA STRENGTH [Concomitant]
     Active Substance: ACETAMINOPHEN
  16. VITAMIN B COMPLEX [Concomitant]
     Active Substance: CYANOCOBALAMIN\DEXPANTHENOL\NIACINAMIDE\PYRIDOXINE HYDROCHLORIDE\RIBOFLAVIN 5^-PHOSPHATE SODIUM\THIAMINE HYDROCHLORIDE\VITAMIN B COMPLEX
  17. EVAMIST [Concomitant]
     Active Substance: ESTRADIOL
  18. NAPROXEN SODIUM. [Concomitant]
     Active Substance: NAPROXEN SODIUM

REACTIONS (2)
  - Anxiety [Recovering/Resolving]
  - Depression [Recovering/Resolving]
